FAERS Safety Report 10538574 (Version 1)
Quarter: 2014Q4

REPORT INFORMATION
  Report Type: Spontaneous
  Country: FR (occurrence: FR)
  Receive Date: 20141023
  Receipt Date: 20141023
  Transmission Date: 20150529
  Serious: Yes (Hospitalization)
  Sender: FDA-Public Use
  Company Number: FR-BRISTOL-MYERS SQUIBB COMPANY-21497383

PATIENT
  Age: 91 Year
  Sex: Female

DRUGS (8)
  1. SPASFON [Concomitant]
     Active Substance: PHLOROGLUCINOL
  2. VOLTARENE [Concomitant]
     Active Substance: DICLOFENAC SODIUM
  3. STILNOX [Concomitant]
     Active Substance: ZOLPIDEM TARTRATE
  4. LOXEN [Concomitant]
     Active Substance: NICARDIPINE HYDROCHLORIDE
  5. HYDREA [Suspect]
     Active Substance: HYDROXYUREA
     Indication: POLYCYTHAEMIA
     Route: 048
     Dates: start: 20081008, end: 20140904
  6. CORDARONE [Concomitant]
     Active Substance: AMIODARONE HYDROCHLORIDE
  7. COVERSYL [Concomitant]
     Active Substance: PERINDOPRIL
  8. SPECIAFOLDINE [Concomitant]
     Active Substance: FOLIC ACID

REACTIONS (2)
  - Pulmonary sepsis [Recovered/Resolved]
  - Thrombocytopenia [Recovered/Resolved]

NARRATIVE: CASE EVENT DATE: 201409
